FAERS Safety Report 6110448-5 (Version None)
Quarter: 2009Q1

REPORT INFORMATION
  Report Type: 
  Country: None (occurrence: None)
  Receive Date: 20090310
  Receipt Date: 20090223
  Transmission Date: 20090719
  Serious: Yes (Hospitalization, Other)
  Sender: FDA-Public Use
  Company Number: ES-GENENTECH-278009

PATIENT
  Sex: Female

DRUGS (1)
  1. AVASTIN [Suspect]
     Indication: MYOPIA
     Dosage: 0.05 ML, UNKNOWN
     Route: 031
     Dates: start: 20090127, end: 20090127

REACTIONS (2)
  - HYPOPYON [None]
  - OCULAR HYPERTENSION [None]
